FAERS Safety Report 7765663-1 (Version None)
Quarter: 2011Q3

REPORT INFORMATION
  Report Type: 
  Country: None (occurrence: None)
  Receive Date: 20110921
  Receipt Date: 20110915
  Transmission Date: 20111222
  Serious: Yes (Other)
  Sender: FDA-Public Use
  Company Number: GR-PFIZER INC-2011219027

PATIENT
  Age: 54 Year
  Sex: Male

DRUGS (5)
  1. XANAX [Suspect]
     Dosage: 10 MG, UNK
  2. XANAX [Suspect]
     Dosage: 19 MG, UNK
     Dates: start: 20110914
  3. CITALOPRAM HYDROBROMIDE [Concomitant]
     Dosage: 20 MG, UNK
  4. XANAX [Suspect]
     Dosage: 8 MG, UNK
  5. XANAX [Suspect]
     Indication: DEPRESSION
     Dosage: 6 MG, UNK
     Dates: start: 19950101

REACTIONS (7)
  - STRESS [None]
  - NIGHTMARE [None]
  - SOMNOLENCE [None]
  - ANGER [None]
  - INTENTIONAL DRUG MISUSE [None]
  - FEELING ABNORMAL [None]
  - DEPRESSION [None]
